FAERS Safety Report 6599184-9 (Version None)
Quarter: 2010Q1

REPORT INFORMATION
  Report Type: 
  Country: None (occurrence: None)
  Receive Date: 20100212
  Receipt Date: 20090924
  Transmission Date: 20100710
  Serious: No
  Sender: FDA-Public Use
  Company Number: 2009-00615

PATIENT
  Age: 25 Year
  Sex: Male
  Weight: 104.3273 kg

DRUGS (3)
  1. ZICAM COLD REMEDY ORAL MIST [Suspect]
     Dosage: BID - ONGOING
     Dates: start: 20090923
  2. ONE-A-DAY MULTIVITAMIN [Concomitant]
  3. VITAMIN C [Concomitant]

REACTIONS (1)
  - AGEUSIA [None]
